FAERS Safety Report 4868751-2 (Version None)
Quarter: 2005Q4

REPORT INFORMATION
  Report Type: 
  Country: None (occurrence: None)
  Receive Date: 20051223
  Receipt Date: 20051216
  Transmission Date: 20060501
  Serious: Yes (Other)
  Sender: FDA-Public Use
  Company Number: 2005167958

PATIENT
  Age: 33 Year
  Sex: Female

DRUGS (6)
  1. ALPRAZOLAM [Suspect]
     Indication: DYSTHYMIC DISORDER
  2. THIOPENTAL SODIUM [Suspect]
     Indication: DYSTHYMIC DISORDER
     Dosage: INTRAVENOUS
     Route: 042
     Dates: start: 20051001, end: 20051001
  3. MIDAZOLAM HCL [Suspect]
     Dosage: INTRAVENOUS
     Route: 042
     Dates: start: 20051001, end: 20051001
  4. PAXIL [Suspect]
  5. DEPAS (ETIZOLAM) [Suspect]
  6. NITRAZEPAM [Suspect]

REACTIONS (5)
  - APGAR SCORE LOW [None]
  - CAESAREAN SECTION [None]
  - DRUG EXPOSURE DURING PREGNANCY [None]
  - NEONATAL ASPHYXIA [None]
  - NEONATAL RESPIRATORY DEPRESSION [None]
